FAERS Safety Report 16189575 (Version 2)
Quarter: 2019Q2

REPORT INFORMATION
  Report Type: Spontaneous
  Country: BE (occurrence: BE)
  Receive Date: 20190412
  Receipt Date: 20190416
  Transmission Date: 20190711
  Serious: Yes (Other)
  Sender: FDA-Public Use
  Company Number: BE-MYLANLABS-2019M1034299

PATIENT
  Age: 15 Year
  Sex: Male

DRUGS (12)
  1. AMPHOTERICIN B, LIPOSOME [Suspect]
     Active Substance: AMPHOTERICIN B
     Indication: TRICHOSPORON INFECTION
     Dosage: 50 MG, UNK (50 MG I.V. 3 TIMES WEEKLY)
     Route: 042
     Dates: start: 19880423, end: 19880802
  2. AMOXICILLIN. [Concomitant]
     Active Substance: AMOXICILLIN
     Indication: PLEOCYTOSIS
     Dosage: UNK
     Dates: start: 1988
  3. FLUCONAZOLE. [Suspect]
     Active Substance: FLUCONAZOLE
     Indication: MENINGITIS
     Dosage: 400 MILLIGRAM, QD (400 MG/DAY PER OS)
     Route: 048
     Dates: start: 19880423
  4. FLUCYTOSINE. [Suspect]
     Active Substance: FLUCYTOSINE
     Indication: MENINGITIS
     Dosage: UNK
     Route: 048
  5. FLUCONAZOLE. [Suspect]
     Active Substance: FLUCONAZOLE
     Indication: TRICHOSPORON INFECTION
     Dosage: 100 MILLIGRAM, QD
     Route: 048
     Dates: start: 19880406
  6. CHLORAMPHENICOL [Concomitant]
     Active Substance: CHLORAMPHENICOL
     Indication: PLEOCYTOSIS
     Dosage: UNK
     Dates: start: 1988
  7. ERYTHROMYCIN. [Concomitant]
     Active Substance: ERYTHROMYCIN
     Indication: PLEOCYTOSIS
     Dosage: UNK
     Dates: start: 1988
  8. VANCOMYCIN [Concomitant]
     Active Substance: VANCOMYCIN
     Indication: PLEOCYTOSIS
     Dosage: UNK
     Dates: start: 1988
  9. FLUCONAZOLE. [Suspect]
     Active Substance: FLUCONAZOLE
     Dosage: 200 MILLIGRAM, QD
     Route: 048
     Dates: start: 19880425
  10. FLUCYTOSINE. [Suspect]
     Active Substance: FLUCYTOSINE
     Indication: TRICHOSPORON INFECTION
     Dosage: 37.5 MG/KG, 4X/DAY (37.5 MG/KG PER OS Q.I.D.
     Route: 048
     Dates: start: 19880423, end: 19880802
  11. AMPHOTERICIN B, LIPOSOME [Suspect]
     Active Substance: AMPHOTERICIN B
     Indication: MENINGITIS
  12. CEFTAZIDIME. [Concomitant]
     Active Substance: CEFTAZIDIME
     Indication: PLEOCYTOSIS
     Dosage: UNK
     Dates: start: 1988

REACTIONS (2)
  - Drug ineffective [Recovering/Resolving]
  - Off label use [Recovered/Resolved]

NARRATIVE: CASE EVENT DATE: 19880423
